FAERS Safety Report 12774396 (Version 2)
Quarter: 2016Q4

REPORT INFORMATION
  Report Type: Spontaneous
  Country: ZA (occurrence: ZA)
  Receive Date: 20160923
  Receipt Date: 20161125
  Transmission Date: 20170207
  Serious: Yes (Other)
  Sender: FDA-Public Use
  Company Number: ZA-009507513-1609ZAF007794

PATIENT

DRUGS (1)
  1. JANUMET [Suspect]
     Active Substance: METFORMIN HYDROCHLORIDE\SITAGLIPTIN PHOSPHATE
     Indication: TYPE 2 DIABETES MELLITUS
     Dosage: UNK
     Route: 048

REACTIONS (9)
  - Atrial fibrillation [Unknown]
  - Choking sensation [Unknown]
  - Weight decreased [Unknown]
  - Hypertension [Unknown]
  - Vomiting [Unknown]
  - Blood cholesterol increased [Unknown]
  - Dizziness [Unknown]
  - Therapeutic response unexpected [Unknown]
  - Nausea [Unknown]
